FAERS Safety Report 9552461 (Version 1)
Quarter: 2013Q3

REPORT INFORMATION
  Report Type: Spontaneous
  Country: US (occurrence: None)
  Receive Date: 20130729
  Receipt Date: 20130729
  Transmission Date: 20140515
  Serious: Yes (Other)
  Sender: FDA-Public Use
  Company Number: 1302USA011945

PATIENT
  Age: 52 Year
  Sex: Female

DRUGS (3)
  1. PEG-INTRON [Suspect]
     Indication: HEPATITIS C
     Route: 058
     Dates: start: 20030207, end: 20050107
  2. REBETOL [Suspect]
     Indication: HEPATITIS C
     Route: 048
     Dates: start: 20030207, end: 20050107
  3. VICTRELIS [Suspect]
     Indication: HEPATITIS C
     Route: 048
     Dates: start: 20130323

REACTIONS (10)
  - Anaemia [None]
  - Gastrointestinal disorder [None]
  - Skin disorder [None]
  - Vomiting [None]
  - Nausea [None]
  - Drug ineffective [None]
  - Feeling abnormal [None]
  - Decreased appetite [None]
  - Dry mouth [None]
  - Ageusia [None]
